FAERS Safety Report 8836550 (Version 1)
Quarter: 2012Q4

REPORT INFORMATION
  Report Type: Spontaneous
  Country: US (occurrence: None)
  Receive Date: 20121009
  Receipt Date: 20121009
  Transmission Date: 20130627
  Serious: Yes (Other)
  Sender: FDA-Public Use
  Company Number: 1047172

PATIENT
  Age: 53 Year
  Sex: Female
  Weight: 65.77 kg

DRUGS (2)
  1. NOSTRILLA [Suspect]
     Indication: SINUS CONGESTION
     Dates: start: 20120118, end: 20120120
  2. HYDROCHLOROTHIAZIDE [Concomitant]

REACTIONS (2)
  - Ageusia [None]
  - Anosmia [None]
